FAERS Safety Report 4445239-4 (Version None)
Quarter: 2004Q3

REPORT INFORMATION
  Report Type: 
  Country: None (occurrence: None)
  Receive Date: 20040902
  Receipt Date: 20040824
  Transmission Date: 20050211
  Serious: Yes (Life-Threatening, Hospitalization)
  Sender: FDA-Public Use
  Company Number: 2004230065US

PATIENT
  Age: 64 Year
  Sex: Female
  Weight: 91.9 kg

DRUGS (13)
  1. CAMPTOSAR [Suspect]
     Indication: ANAL CANCER METASTATIC
     Dosage: 65 MG/M2, WK 1-2 , CYCLIC, IV
     Route: 042
     Dates: start: 20040604, end: 20040730
  2. CAMPARATOR - CISPLATIN (CISPLATIN, CISPLATIN) INJECTION [Suspect]
     Indication: ANAL CANCER METASTATIC
     Dosage: 30 MG/M2, WK 1-2, CYCLIC, IV
     Route: 042
     Dates: start: 20040604, end: 20040730
  3. CAMPATOR-CAPECITABINE (CAPECITABINE, CAPECITABINE) TABLET [Suspect]
     Indication: ANAL CANCER METASTATIC
     Dosage: 1400 MG/M2, DAY 1 4, CYCLIC, ORAL
     Route: 048
     Dates: start: 20040604, end: 20040806
  4. LEUCOVORIN CALCIUM [Concomitant]
  5. LEVOFLOXACIN [Concomitant]
  6. COLACE (DOCUSATE SODIUM) [Concomitant]
  7. COMPAZINE [Concomitant]
  8. CORDRAN (FLUDROXYCORTIDE) [Concomitant]
  9. DECADRON [Concomitant]
  10. DURAGESIC [Concomitant]
  11. FERROUS GLUCONATE [Concomitant]
  12. FLAGYL [Concomitant]
  13. KENALOG (TRIAMCINOLONE ACETONIDE) OINTMENT [Concomitant]

REACTIONS (6)
  - DEHYDRATION [None]
  - DIARRHOEA [None]
  - DRUG TOXICITY [None]
  - FATIGUE [None]
  - NEUTROPENIA [None]
  - PYREXIA [None]
